FAERS Safety Report 11524668 (Version 1)
Quarter: 2015Q3

REPORT INFORMATION
  Report Type: Spontaneous
  Country: US (occurrence: US)
  Receive Date: 20150918
  Receipt Date: 20150918
  Transmission Date: 20151125
  Serious: Yes (Other)
  Sender: FDA-Public Use
  Company Number: US-GILEAD-2015-0172016

PATIENT
  Sex: Female

DRUGS (2)
  1. RANEXA [Suspect]
     Active Substance: RANOLAZINE
     Indication: ANGINA PECTORIS
     Dosage: 500 MG, BID
     Route: 065
  2. RANEXA [Suspect]
     Active Substance: RANOLAZINE
     Indication: MICROVASCULAR CORONARY ARTERY DISEASE
     Dosage: 1000 MG, BID
     Route: 065

REACTIONS (3)
  - Therapeutic response unexpected [Unknown]
  - Abdominal discomfort [Unknown]
  - Drug ineffective [Unknown]
